FAERS Safety Report 10072137 (Version 1)
Quarter: 2014Q2

REPORT INFORMATION
  Report Type: Spontaneous
  Country: US (occurrence: US)
  Receive Date: 20140411
  Receipt Date: 20140411
  Transmission Date: 20141212
  Serious: No
  Sender: FDA-Public Use
  Company Number: US-009507513-1404USA005246

PATIENT
  Age: 77 Year
  Sex: Female

DRUGS (4)
  1. ASMANEX TWISTHALER [Suspect]
     Indication: CHRONIC OBSTRUCTIVE PULMONARY DISEASE
     Dosage: 2 PUFFS DAILY
     Route: 055
     Dates: start: 20140208
  2. ASMANEX TWISTHALER [Suspect]
     Dosage: THREE DOSES
     Route: 055
  3. PROAIR HFA [Concomitant]
     Dosage: ONCE A WEEK
     Route: 055
  4. PROAIR HFA [Concomitant]
     Dosage: EVERY HOUR
     Route: 055
     Dates: start: 201403

REACTIONS (4)
  - Drug ineffective [Not Recovered/Not Resolved]
  - Off label use [Unknown]
  - Drug dose omission [Unknown]
  - Product quality issue [Unknown]
